FAERS Safety Report 25282566 (Version 1)
Quarter: 2025Q2

REPORT INFORMATION
  Report Type: Spontaneous
  Country: US (occurrence: US)
  Receive Date: 20250508
  Receipt Date: 20250508
  Transmission Date: 20250716
  Serious: Yes (Other)
  Sender: MERCK SHARP & DOHME LLC
  Company Number: US-009507513-2282075

PATIENT
  Sex: Male

DRUGS (1)
  1. PEMBROLIZUMAB [Suspect]
     Active Substance: PEMBROLIZUMAB
     Route: 065

REACTIONS (3)
  - Unresponsive to stimuli [Unknown]
  - Hypoglycaemia [Unknown]
  - Adverse reaction [Unknown]

NARRATIVE: CASE EVENT DATE: 20250401
